FAERS Safety Report 5157238-8 (Version None)
Quarter: 2006Q4

REPORT INFORMATION
  Report Type: 
  Country: None (occurrence: None)
  Receive Date: 20061127
  Receipt Date: 20061019
  Transmission Date: 20070319
  Serious: Yes (Other)
  Sender: FDA-Public Use
  Company Number: PHFR2006GB03146

PATIENT
  Age: 11 Year
  Sex: Male

DRUGS (4)
  1. TEGRETOL [Suspect]
     Dosage: 150 MG, BID
     Route: 065
     Dates: start: 20060831
  2. TEGRETOL [Suspect]
     Dosage: 200 MG, BID
     Route: 065
  3. TEGRETOL [Suspect]
     Dosage: 250 MG, BID
     Route: 065
  4. TEGRETOL [Suspect]
     Dosage: 100 MG, BID
     Route: 048
     Dates: start: 20060831

REACTIONS (5)
  - ABNORMAL BEHAVIOUR [None]
  - DISTURBANCE IN ATTENTION [None]
  - DISTURBANCE IN SOCIAL BEHAVIOUR [None]
  - EMOTIONAL DISORDER [None]
  - IRRITABILITY [None]
